FAERS Safety Report 22531707 (Version 1)
Quarter: 2023Q2

REPORT INFORMATION
  Report Type: Spontaneous
  Country: US (occurrence: US)
  Receive Date: 20230607
  Receipt Date: 20230607
  Transmission Date: 20230721
  Serious: Yes (Hospitalization, Other)
  Sender: FDA-Public Use
  Company Number: US-drreddys-LIT/USA/23/0166275

PATIENT
  Age: 45 Year
  Sex: Female

DRUGS (17)
  1. DIVALPROEX SODIUM [Suspect]
     Active Substance: DIVALPROEX SODIUM
     Indication: Trigeminal neuralgia
  2. TIZANIDINE HYDROCHLORIDE [Suspect]
     Active Substance: TIZANIDINE HYDROCHLORIDE
     Indication: Hypertension
  3. TIZANIDINE HYDROCHLORIDE [Suspect]
     Active Substance: TIZANIDINE HYDROCHLORIDE
     Indication: Trigeminal neuralgia
  4. DULOXETINE [Suspect]
     Active Substance: DULOXETINE
     Indication: Hypertension
  5. DULOXETINE [Suspect]
     Active Substance: DULOXETINE
     Indication: Trigeminal neuralgia
  6. GABAPENTIN [Suspect]
     Active Substance: GABAPENTIN
     Indication: Hypertension
  7. GABAPENTIN [Suspect]
     Active Substance: GABAPENTIN
     Indication: Trigeminal neuralgia
  8. BACLOFEN [Suspect]
     Active Substance: BACLOFEN
     Indication: Hypertension
  9. BACLOFEN [Suspect]
     Active Substance: BACLOFEN
     Indication: Trigeminal neuralgia
  10. OXCARBAZEPINE [Suspect]
     Active Substance: OXCARBAZEPINE
     Indication: Hypertension
  11. OXCARBAZEPINE [Suspect]
     Active Substance: OXCARBAZEPINE
     Indication: Trigeminal neuralgia
  12. CARBAMAZEPINE [Suspect]
     Active Substance: CARBAMAZEPINE
     Indication: Hypertension
  13. CARBAMAZEPINE [Suspect]
     Active Substance: CARBAMAZEPINE
     Indication: Trigeminal neuralgia
  14. TOPIRAMATE [Suspect]
     Active Substance: TOPIRAMATE
     Indication: Hypertension
  15. TOPIRAMATE [Suspect]
     Active Substance: TOPIRAMATE
     Indication: Trigeminal neuralgia
  16. AMITRIPTYLINE [Suspect]
     Active Substance: AMITRIPTYLINE
     Indication: Hypertension
  17. AMITRIPTYLINE [Suspect]
     Active Substance: AMITRIPTYLINE
     Indication: Trigeminal neuralgia

REACTIONS (4)
  - Drug-induced liver injury [Unknown]
  - Acute hepatic failure [Unknown]
  - Treatment failure [Unknown]
  - Product use in unapproved indication [Unknown]
